FAERS Safety Report 7953282-3 (Version None)
Quarter: 2011Q4

REPORT INFORMATION
  Report Type: 
  Country: None (occurrence: None)
  Receive Date: 20111201
  Receipt Date: 20111118
  Transmission Date: 20120403
  Serious: Yes (Congenital Anomaly, Other)
  Sender: FDA-Public Use
  Company Number: DE-MYLANLABS-2011S1023804

PATIENT
  Age: 0 Year
  Sex: Male
  Weight: 4.12 kg

DRUGS (4)
  1. VOMEX A /00019501/ [Concomitant]
     Dosage: BETWEEN GW 9 AND 17 PROBABLY ONLY TWICE TAKEN
     Route: 064
     Dates: end: 20110303
  2. LORAZEPAM [Concomitant]
     Dosage: 6.4-11.6 GW
     Route: 064
     Dates: start: 20101220, end: 20110126
  3. FOLIC ACID [Concomitant]
     Dosage: 0-12 GW
     Route: 064
     Dates: start: 20101104
  4. SERTRALINE HYDROCHLORIDE [Suspect]
     Dosage: 100 [MG/D (BIS 75) ]/ 75 MG UNTIL 18.01.11, THEN 100 MG DAILY
     Route: 064
     Dates: start: 20101220, end: 20110802

REACTIONS (8)
  - MATERNAL EXPOSURE DURING PREGNANCY [None]
  - LARGE FOR DATES BABY [None]
  - TRANSAMINASES INCREASED [None]
  - DRUG WITHDRAWAL SYNDROME NEONATAL [None]
  - ATRIAL SEPTAL DEFECT [None]
  - NEONATAL RESPIRATORY DISTRESS SYNDROME [None]
  - PETECHIAE [None]
  - HAEMANGIOMA CONGENITAL [None]
